FAERS Safety Report 7217565-7 (Version None)
Quarter: 2011Q1

REPORT INFORMATION
  Report Type: 
  Country: None (occurrence: None)
  Receive Date: 20110110
  Receipt Date: 20110105
  Transmission Date: 20110831
  Serious: Yes (Hospitalization)
  Sender: FDA-Public Use
  Company Number: JP-EISAI INC.-E2090-01414-SPO-JP

PATIENT
  Sex: Female

DRUGS (2)
  1. EXCEGRAN [Suspect]
     Indication: EPILEPSY
     Dates: start: 20101002, end: 20101014
  2. TEGRETOL [Concomitant]
     Indication: EPILEPSY
     Route: 048
     Dates: start: 20080603

REACTIONS (1)
  - STEVENS-JOHNSON SYNDROME [None]
